FAERS Safety Report 21843411 (Version 2)
Quarter: 2023Q1

REPORT INFORMATION
  Report Type: Spontaneous
  Country: JP (occurrence: JP)
  Receive Date: 20230110
  Receipt Date: 20230220
  Transmission Date: 20230418
  Serious: Yes (Death, Hospitalization)
  Sender: FDA-Public Use
  Company Number: JP-TEVA-2023-JP-2844160

PATIENT
  Age: 62 Year
  Sex: Male

DRUGS (7)
  1. IRINOTECAN [Suspect]
     Active Substance: IRINOTECAN
     Indication: Ductal adenocarcinoma of pancreas
     Dosage: ADMINISTERED UNDER THE MODIFIED FOLFIRINOX REGIMEN
     Route: 065
  2. GEMCITABINE [Suspect]
     Active Substance: GEMCITABINE
     Indication: Ductal adenocarcinoma of pancreas
     Dosage: ON DAY 1, 8 AND 15 FOR 3 WEEKS AND 1 WEEK WASHOUT
     Route: 065
  3. PACLITAXEL [Suspect]
     Active Substance: PACLITAXEL
     Indication: Ductal adenocarcinoma of pancreas
     Dosage: ON DAY 1, 8 AND 15 FOR 3 WEEKS AND 1 WEEK WASHOUT
     Route: 065
  4. TS-1 [Suspect]
     Active Substance: GIMERACIL\OTERACIL\TEGAFUR
     Indication: Ductal adenocarcinoma of pancreas
     Dosage: 120 MILLIGRAM DAILY; FOR 4 WEEKS OF ADMINISTRATION AND 2 WEEKS OF WASHOUT
     Route: 065
  5. OXALIPLATIN [Suspect]
     Active Substance: OXALIPLATIN
     Indication: Ductal adenocarcinoma of pancreas
     Dosage: ADMINISTERED UNDER THE MODIFIED FOLFIRINOX REGIMEN
     Route: 065
  6. FLUOROURACIL [Suspect]
     Active Substance: FLUOROURACIL
     Indication: Ductal adenocarcinoma of pancreas
     Dosage: ADMINISTERED UNDER THE MODIFIED FOLFIRINOX REGIMEN
     Route: 065
  7. LEUCOVORIN [Suspect]
     Active Substance: LEUCOVORIN
     Indication: Ductal adenocarcinoma of pancreas
     Dosage: ADMINISTERED UNDER THE MODIFIED FOLFIRINOX REGIMEN
     Route: 065

REACTIONS (1)
  - Drug ineffective [Fatal]
